FAERS Safety Report 6101772-0 (Version None)
Quarter: 2009Q1

REPORT INFORMATION
  Report Type: 
  Country: None (occurrence: None)
  Receive Date: 20090227
  Receipt Date: 20080702
  Transmission Date: 20090719
  Serious: Yes (Life-Threatening, Hospitalization)
  Sender: FDA-Public Use
  Company Number: 254954

PATIENT
  Age: 10 Year
  Sex: Male
  Weight: 51 kg

DRUGS (8)
  1. NUTROPIN AQ [Suspect]
     Indication: PRADER-WILLI SYNDROME
     Dosage: 2 MG, 7/WEEK, SUBCUTANEOUS : 1.5 MG, 7/WEEK, SUBCUTANEOUS
     Route: 058
     Dates: start: 20000713
  2. NUTROPIN AQ [Suspect]
     Indication: PRADER-WILLI SYNDROME
     Dosage: 2 MG, 7/WEEK, SUBCUTANEOUS : 1.5 MG, 7/WEEK, SUBCUTANEOUS
     Route: 058
     Dates: start: 20071206
  3. CLARITIN [Concomitant]
  4. SINGULAIR [Concomitant]
  5. PULMICORT [Concomitant]
  6. DOXYCYCLINE [Concomitant]
  7. FLOVENT [Concomitant]
  8. RIFAMPIN [Concomitant]

REACTIONS (1)
  - SCOLIOSIS [None]
